FAERS Safety Report 10095441 (Version 2)
Quarter: 2014Q2

REPORT INFORMATION
  Report Type: Spontaneous
  Country: US (occurrence: US)
  Receive Date: 20140422
  Receipt Date: 20140422
  Transmission Date: 20141212
  Serious: No
  Sender: FDA-Public Use
  Company Number: US-GILEAD-2013-0075579

PATIENT
  Sex: Male

DRUGS (4)
  1. LETAIRIS [Suspect]
     Indication: PULMONARY HYPERTENSION
     Dosage: 5 MG, QD
     Dates: start: 20130510
  2. LETAIRIS [Suspect]
     Indication: CARDIAC FAILURE
  3. COREG [Concomitant]
  4. LISINOPRIL [Concomitant]

REACTIONS (4)
  - Hypotension [Recovered/Resolved]
  - Fall [Unknown]
  - Weight increased [Unknown]
  - Oedema [Unknown]
